FAERS Safety Report 21407737 (Version 3)
Quarter: 2022Q4

REPORT INFORMATION
  Report Type: Other
  Country: IL (occurrence: None)
  Receive Date: 20221004
  Receipt Date: 20221025
  Transmission Date: 20230113
  Serious: No
  Sender: FDA-Public Use
  Company Number: IL-ROCHE-3183561

PATIENT
  Age: 45 Year
  Sex: Female

DRUGS (1)
  1. OCREVUS [Suspect]
     Active Substance: OCRELIZUMAB
     Indication: Primary progressive multiple sclerosis
     Dosage: 300 FIRST TREATMENT, MORE DOSAGE INFORMATION: 600 MG IN 6 MONTHS
     Route: 042
     Dates: start: 20220220

REACTIONS (4)
  - Asthenia [Recovered/Resolved]
  - Urinary tract infection [Recovering/Resolving]
  - Vulvovaginal candidiasis [Not Recovered/Not Resolved]
  - Urinary tract infection [Not Recovered/Not Resolved]

NARRATIVE: CASE EVENT DATE: 20220220
